FAERS Safety Report 8590389-4 (Version None)
Quarter: 2012Q3

REPORT INFORMATION
  Report Type: 
  Country: None (occurrence: None)
  Receive Date: 20120813
  Receipt Date: 20120803
  Transmission Date: 20120928
  Serious: Yes (Other)
  Sender: FDA-Public Use
  Company Number: BR-JNJFOC-20120802126

PATIENT
  Age: 25 Year
  Sex: Female
  Weight: 63 kg

DRUGS (1)
  1. ACETAMINOPHEN W/ CODEINE [Suspect]
     Indication: HEADACHE
     Route: 048
     Dates: start: 20120801, end: 20120802

REACTIONS (4)
  - SWELLING FACE [None]
  - PRURITUS [None]
  - JOINT SWELLING [None]
  - BLISTER [None]
